FAERS Safety Report 6872202-6 (Version None)
Quarter: 2010Q2

REPORT INFORMATION
  Report Type: 
  Country: None (occurrence: None)
  Receive Date: 20100528
  Receipt Date: 20100209
  Transmission Date: 20101027
  Serious: No
  Sender: FDA-Public Use
  Company Number: 2010018297

PATIENT
  Age: 78 Year
  Sex: Female
  Weight: 87.1 kg

DRUGS (1)
  1. TOVIAZ (FESOTERODINE) MODIFIED-RELEASE TABLET [Suspect]
     Indication: INCONTINENCE
     Dosage: 4 MG, 1X/DAY DAILY DOSE: 4 MG, ORAL
     Route: 048
     Dates: start: 20100201, end: 20100201

REACTIONS (1)
  - CONSTIPATION [None]
